FAERS Safety Report 9464863 (Version 2)
Quarter: 2015Q2

REPORT INFORMATION
  Report Type: Spontaneous
  Country: US (occurrence: US)
  Receive Date: 20130819
  Receipt Date: 20150506
  Transmission Date: 20150821
  Serious: Yes (Other)
  Sender: FDA-Public Use
  Company Number: PHHY2013US087050

PATIENT
  Age: 45 Year
  Sex: Male

DRUGS (7)
  1. PAROXETINE [Interacting]
     Active Substance: PAROXETINE\PAROXETINE HYDROCHLORIDE
     Dosage: 37.5 MG, QD
  2. ZOLPIDEM [Suspect]
     Active Substance: ZOLPIDEM\ZOLPIDEM TARTRATE
     Indication: MAJOR DEPRESSION
     Dosage: 10 MG AT NIGHT
     Route: 065
  3. PAROXETINE [Interacting]
     Active Substance: PAROXETINE\PAROXETINE HYDROCHLORIDE
     Dosage: 25 MG, QD
  4. PAROXETINE [Interacting]
     Active Substance: PAROXETINE\PAROXETINE HYDROCHLORIDE
     Indication: MAJOR DEPRESSION
     Dosage: 12.5 MG, QD
  5. QUETIAPINE [Concomitant]
     Active Substance: QUETIAPINE
     Indication: MAJOR DEPRESSION
     Dosage: 25 MG, QD
     Route: 065
  6. QUETIAPINE [Concomitant]
     Active Substance: QUETIAPINE
     Dosage: 100 MG, QD
     Route: 065
  7. LORAZEPAM. [Concomitant]
     Active Substance: LORAZEPAM
     Indication: MAJOR DEPRESSION
     Dosage: 1 MG, BID
     Route: 065

REACTIONS (15)
  - Catatonia [Unknown]
  - Drug interaction [Unknown]
  - Memory impairment [Unknown]
  - Confusional state [Unknown]
  - Psychotic disorder [Unknown]
  - Aggression [Unknown]
  - Seizure [Unknown]
  - Anxiety [Unknown]
  - Speech disorder [Unknown]
  - Extra dose administered [Unknown]
  - Glassy eyes [Unknown]
  - Agitation [Unknown]
  - Initial insomnia [Unknown]
  - Amnesia [Unknown]
  - Homicide [Unknown]
